FAERS Safety Report 6693692-8 (Version None)
Quarter: 2010Q2

REPORT INFORMATION
  Report Type: 
  Country: None (occurrence: None)
  Receive Date: 20100423
  Receipt Date: 20100420
  Transmission Date: 20101027
  Serious: Yes (Other)
  Sender: FDA-Public Use
  Company Number: US-TEVA-231470USA

PATIENT
  Age: 23 Year
  Sex: Male

DRUGS (4)
  1. SIMVASTATIN [Suspect]
     Route: 048
     Dates: start: 20100101, end: 20100101
  2. CITALOPRAM HYDROBROMIDE [Concomitant]
     Indication: DEPRESSION
  3. FENOFIBRATE [Concomitant]
     Indication: BLOOD CHOLESTEROL
  4. LOVAZA [Concomitant]

REACTIONS (3)
  - DEPRESSION [None]
  - SUICIDAL IDEATION [None]
  - TEARFULNESS [None]
